FAERS Safety Report 21240720 (Version 1)
Quarter: 2022Q3

REPORT INFORMATION
  Report Type: Spontaneous
  Country: US (occurrence: US)
  Receive Date: 20220823
  Receipt Date: 20220823
  Transmission Date: 20221027
  Serious: No
  Sender: FDA-Public Use
  Company Number: US-SA-SAC20220816000869

PATIENT
  Age: 50 Year
  Sex: Female

DRUGS (2)
  1. NEXVIAZYME [Suspect]
     Active Substance: AVALGLUCOSIDASE ALFA-NGPT
     Route: 065
  2. NEXVIAZYME [Concomitant]
     Active Substance: AVALGLUCOSIDASE ALFA-NGPT

REACTIONS (1)
  - Antibody test positive [Unknown]
